FAERS Safety Report 5262542-9 (Version None)
Quarter: 2007Q1

REPORT INFORMATION
  Report Type: 
  Country: None (occurrence: None)
  Receive Date: 20070312
  Receipt Date: 20070228
  Transmission Date: 20070707
  Serious: Yes (Hospitalization)
  Sender: FDA-Public Use
  Company Number: 2006UW12200

PATIENT
  Sex: Female
  Weight: 116.8 kg

DRUGS (6)
  1. SEROQUEL [Suspect]
     Route: 048
     Dates: start: 20010101
  2. ZYPREXA [Suspect]
     Dates: start: 20040401
  3. ABILIFY [Concomitant]
  4. HALDOL [Concomitant]
  5. RISPERDAL [Concomitant]
  6. STELAZINE [Concomitant]
     Dates: start: 19980101

REACTIONS (2)
  - DIABETES MELLITUS [None]
  - MENTAL DISORDER [None]
